FAERS Safety Report 8902515 (Version 1)
Quarter: 2012Q4

REPORT INFORMATION
  Report Type: 
  Country: IT (occurrence: IT)
  Receive Date: 20121112
  Receipt Date: 20121112
  Transmission Date: 20130627
  Serious: Yes (Hospitalization)
  Sender: FDA-Public Use
  Company Number: IT-BAYER-2012-116266

PATIENT
  Age: 74 Year
  Sex: Male

DRUGS (7)
  1. CARDIOASPIRIN [Suspect]
     Dosage: 100 mg, QD
     Route: 048
     Dates: start: 20070101, end: 20121027
  2. LANSOX [Concomitant]
     Dosage: Daily dose 30 mg
     Route: 048
  3. TAMSULOSIN [Concomitant]
     Dosage: Daily dose .4 mg
     Route: 048
  4. TAVOR [Concomitant]
     Dosage: Daily dose 1.5 mg
     Route: 048
  5. SIVASTIN [Concomitant]
     Dosage: Daily dose 20 mg
     Route: 048
  6. AVODART [Concomitant]
     Dosage: Daily dose .5 mg
     Route: 048
  7. CORDARONE [Concomitant]
     Dosage: Daily dose 200 mg
     Route: 048

REACTIONS (5)
  - Sopor [Recovering/Resolving]
  - Confusional state [Recovering/Resolving]
  - Nausea [Recovering/Resolving]
  - Vomiting [Recovering/Resolving]
  - Cerebellar haemorrhage [Recovering/Resolving]
